FAERS Safety Report 9322738 (Version 2)
Quarter: 2014Q1

REPORT INFORMATION
  Report Type: Spontaneous
  Country: US (occurrence: US)
  Receive Date: 20130601
  Receipt Date: 20140131
  Transmission Date: 20141002
  Serious: Yes (Hospitalization)
  Sender: FDA-Public Use
  Company Number: US-ASTRAZENECA-2013SE38607

PATIENT
  Age: 871 Month
  Sex: Female
  Weight: 65.8 kg

DRUGS (6)
  1. NEXIUM [Suspect]
     Indication: GASTROOESOPHAGEAL REFLUX DISEASE
     Dosage: ONE A DAY
     Route: 048
     Dates: start: 20021001, end: 20031202
  2. PRILOSEC [Suspect]
     Route: 048
     Dates: start: 2003, end: 2005
  3. ZANTAC [Concomitant]
     Dates: start: 2005
  4. TUMS [Concomitant]
     Dosage: AS NEEDED
  5. ROLAIDS [Concomitant]
     Dosage: AS NEEDED
  6. MYLANTA [Concomitant]
     Dosage: AS NEEDED

REACTIONS (4)
  - Spinal compression fracture [Unknown]
  - Osteoporosis [Unknown]
  - Bone disorder [Unknown]
  - Back pain [Unknown]
